FAERS Safety Report 15712551 (Version 2)
Quarter: 2019Q2

REPORT INFORMATION
  Report Type: Spontaneous
  Country: US (occurrence: US)
  Receive Date: 20181212
  Receipt Date: 20190429
  Transmission Date: 20190711
  Serious: No
  Sender: FDA-Public Use
  Company Number: US-PFIZER INC-2018512673

PATIENT
  Age: 68 Year
  Sex: Male

DRUGS (1)
  1. EUCRISA [Suspect]
     Active Substance: CRISABOROLE
     Indication: DERMATITIS CONTACT
     Dosage: UNK, 2X/DAY
     Route: 061
     Dates: start: 201811

REACTIONS (3)
  - Burning sensation [Unknown]
  - Application site pain [Unknown]
  - Application site pruritus [Unknown]
